FAERS Safety Report 4621196-2 (Version None)
Quarter: 2005Q1

REPORT INFORMATION
  Report Type: 
  Country: None (occurrence: None)
  Receive Date: 20050328
  Receipt Date: 20050318
  Transmission Date: 20050727
  Serious: Yes (Life-Threatening, Hospitalization)
  Sender: FDA-Public Use
  Company Number: 2005-03-1228

PATIENT
  Age: 83 Year
  Sex: Male

DRUGS (9)
  1. AERIUS                 (DESLORATADINE) [Suspect]
     Indication: DRUG USE FOR UNKNOWN INDICATION
     Dosage: 1 DOSE QD
     Dates: start: 20050222, end: 20050226
  2. ESOMEPRAZOLE [Suspect]
     Indication: DRUG USE FOR UNKNOWN INDICATION
     Dosage: 1 DOSE QD
     Dates: start: 20050222, end: 20050226
  3. ZYLORIC [Suspect]
     Indication: DRUG USE FOR UNKNOWN INDICATION
     Dosage: 1 DOSE QD
     Dates: start: 20050209, end: 20050226
  4. RAMIPRIL [Suspect]
     Indication: DRUG USE FOR UNKNOWN INDICATION
     Dosage: SEE IMAGE
     Dates: start: 20050120, end: 20050226
  5. RAMIPRIL [Suspect]
     Indication: DRUG USE FOR UNKNOWN INDICATION
     Dosage: SEE IMAGE
     Dates: end: 20050226
  6. RAMIPRIL [Suspect]
     Indication: DRUG USE FOR UNKNOWN INDICATION
     Dosage: SEE IMAGE
     Dates: start: 20050120
  7. TENORMIN [Concomitant]
  8. KARDEGIC SACHETS                      (ACETYLSALICYLATE LYSINE) [Concomitant]
  9. LASILIX [Concomitant]

REACTIONS (5)
  - AGRANULOCYTOSIS [None]
  - BRONCHITIS [None]
  - CARDIAC ARREST [None]
  - HAEMATOTOXICITY [None]
  - SEPTIC SHOCK [None]
